FAERS Safety Report 4385244-X (Version None)
Quarter: 2004Q2

REPORT INFORMATION
  Report Type: 
  Country: None (occurrence: None)
  Receive Date: 20040625
  Receipt Date: 20040401
  Transmission Date: 20050107
  Serious: Yes (Hospitalization, Disabling)
  Sender: FDA-Public Use
  Company Number: US-MERCK-0404USA00095

PATIENT
  Age: 71 Year
  Sex: Female
  Weight: 59 kg

DRUGS (3)
  1. ESTRACE [Concomitant]
     Route: 065
     Dates: start: 20000101
  2. VIOXX [Suspect]
     Indication: BACK PAIN
     Route: 048
     Dates: start: 20001001
  3. VIOXX [Suspect]
     Indication: ASTHENIA
     Route: 048
     Dates: start: 20001001

REACTIONS (6)
  - BLOOD CHOLESTEROL INCREASED [None]
  - CORONARY ARTERY DISEASE [None]
  - GENERALISED ANXIETY DISORDER [None]
  - MYOCARDIAL INFARCTION [None]
  - POST POLIO SYNDROME [None]
  - WEIGHT DECREASED [None]
